FAERS Safety Report 24563972 (Version 4)
Quarter: 2025Q1

REPORT INFORMATION
  Report Type: Report from Study
  Country: IE (occurrence: IE)
  Receive Date: 20241030
  Receipt Date: 20250117
  Transmission Date: 20250408
  Serious: Yes (Other)
  Sender: JOHNSON AND JOHNSON
  Company Number: IE-JNJFOC-20240378754

PATIENT
  Age: 33 Year
  Sex: Female

DRUGS (7)
  1. TREMFYA [Suspect]
     Active Substance: GUSELKUMAB
     Indication: Psoriasis
     Route: 058
     Dates: start: 20240220
  2. TREMFYA [Suspect]
     Active Substance: GUSELKUMAB
     Route: 058
     Dates: start: 20240416
  3. TREMFYA [Suspect]
     Active Substance: GUSELKUMAB
     Route: 058
     Dates: start: 20240723
  4. TREMFYA [Suspect]
     Active Substance: GUSELKUMAB
     Route: 058
     Dates: start: 20241008
  5. ACITRETIN [Suspect]
     Active Substance: ACITRETIN
     Indication: Product used for unknown indication
     Route: 065
     Dates: start: 202310
  6. LEVOTHYROXINE [Concomitant]
     Active Substance: LEVOTHYROXINE
  7. NEXIUM [Concomitant]
     Active Substance: ESOMEPRAZOLE MAGNESIUM
     Route: 050

REACTIONS (21)
  - Lower respiratory tract infection [Unknown]
  - Disability [Unknown]
  - Hypothyroidism [Unknown]
  - Weight decreased [Not Recovered/Not Resolved]
  - Drug ineffective [Unknown]
  - Psoriasis [Not Recovered/Not Resolved]
  - Eye swelling [Recovered/Resolved]
  - Ocular hyperaemia [Recovered/Resolved]
  - Skin exfoliation [Unknown]
  - Onychoclasis [Unknown]
  - Alopecia [Unknown]
  - Erythema [Unknown]
  - Swelling of eyelid [Unknown]
  - Peripheral swelling [Not Recovered/Not Resolved]
  - Rhinorrhoea [Unknown]
  - Eye pain [Unknown]
  - Infection [Unknown]
  - Nail infection [Unknown]
  - Soft tissue injury [Not Recovered/Not Resolved]
  - Scoliosis [Unknown]
  - Inappropriate schedule of product administration [Unknown]

NARRATIVE: CASE EVENT DATE: 20240101
